FAERS Safety Report 8351340-5 (Version None)
Quarter: 2012Q2

REPORT INFORMATION
  Report Type: 
  Country: None (occurrence: None)
  Receive Date: 20120510
  Receipt Date: 20120508
  Transmission Date: 20120825
  Serious: No
  Sender: FDA-Public Use
  Company Number: US-PFIZER INC-2012113016

PATIENT
  Sex: Male
  Weight: 79 kg

DRUGS (3)
  1. NEURONTIN [Suspect]
     Indication: SOCIAL PHOBIA
     Dosage: 300 MG, 2X/DAY
     Route: 048
     Dates: start: 20110101
  2. NEURONTIN [Suspect]
     Dosage: 300 MG, UNK
     Route: 048
     Dates: end: 20120101
  3. SEROQUEL [Concomitant]
     Dosage: UNK

REACTIONS (2)
  - CRYING [None]
  - DEPRESSION [None]
